FAERS Safety Report 5545200-2 (Version None)
Quarter: 2007Q4

REPORT INFORMATION
  Report Type: 
  Country: None (occurrence: None)
  Receive Date: 20071210
  Receipt Date: 20070115
  Transmission Date: 20080405
  Serious: No
  Sender: FDA-Public Use
  Company Number: US-AMGEN-KDL207122

PATIENT
  Sex: Female

DRUGS (2)
  1. ENBREL [Suspect]
     Route: 058
     Dates: start: 20040701
  2. METHOTREXATE [Concomitant]

REACTIONS (3)
  - MUSCULOSKELETAL STIFFNESS [None]
  - PAIN [None]
  - SWELLING [None]
